FAERS Safety Report 19959623 (Version 1)
Quarter: 2021Q4

REPORT INFORMATION
  Report Type: Spontaneous
  Country: US (occurrence: US)
  Receive Date: 20211015
  Receipt Date: 20211015
  Transmission Date: 20220304
  Serious: Yes (Other)
  Sender: FDA-Public Use
  Company Number: None

PATIENT
  Age: 52 Year
  Sex: Female
  Weight: 58.5 kg

DRUGS (9)
  1. OXYCODONE HYDROCHLORIDE [Suspect]
     Active Substance: OXYCODONE HYDROCHLORIDE
     Indication: Pain
     Dosage: ?          QUANTITY:180 TABLET(S);
     Route: 048
     Dates: start: 20210923, end: 20211001
  2. IBUPROFEN [Concomitant]
     Active Substance: IBUPROFEN
  3. PREDNISONE [Concomitant]
     Active Substance: PREDNISONE
  4. ZOFRAN [Concomitant]
     Active Substance: ONDANSETRON HYDROCHLORIDE
  5. VITAMIN D [Concomitant]
     Active Substance: VITAMIN D NOS
  6. ACUPUNCTURE SPLINTS [Concomitant]
  7. JOINT SUPPORT SPLINTS [Concomitant]
  8. UNSPECIFIED INGREDIENT [Concomitant]
     Active Substance: UNSPECIFIED INGREDIENT
  9. PROGESTERONE [Concomitant]
     Active Substance: PROGESTERONE

REACTIONS (7)
  - Product substitution issue [None]
  - Suspected product quality issue [None]
  - Inadequate analgesia [None]
  - Headache [None]
  - Abdominal pain [None]
  - Nausea [None]
  - Allergic reaction to excipient [None]

NARRATIVE: CASE EVENT DATE: 20210923
